FAERS Safety Report 8533236 (Version 5)
Quarter: 2013Q2

REPORT INFORMATION
  Report Type: Spontaneous
  Country: DE (occurrence: DE)
  Receive Date: 20120427
  Receipt Date: 20130426
  Transmission Date: 20140414
  Serious: Yes (Other)
  Sender: FDA-Public Use
  Company Number: PHHY2012DE033755

PATIENT
  Sex: Female
  Weight: 53 kg

DRUGS (5)
  1. GILENYA [Suspect]
     Indication: MULTIPLE SCLEROSIS
     Dosage: 0.5 MG, QD
     Route: 048
     Dates: start: 20120320
  2. LORATADIN [Concomitant]
     Dosage: 10 MG, DAILY
     Route: 048
  3. CALCIUM W/COLECALCIFEROL [Concomitant]
     Indication: OSTEOPOROSIS
     Route: 048
  4. ZINC [Concomitant]
     Route: 048
  5. ALFUZOSIN [Concomitant]
     Indication: MICTURITION DISORDER
     Dosage: 10 MG, QD
     Route: 048

REACTIONS (3)
  - Myocardial ischaemia [Recovered/Resolved]
  - Electrocardiogram T wave inversion [Recovered/Resolved]
  - Electrocardiogram ST segment depression [Recovered/Resolved]
